FAERS Safety Report 12637560 (Version 1)
Quarter: 2016Q3

REPORT INFORMATION
  Report Type: Spontaneous
  Country: US (occurrence: US)
  Receive Date: 20160809
  Receipt Date: 20160809
  Transmission Date: 20161109
  Serious: No
  Sender: FDA-Public Use
  Company Number: US-ABBVIE-16P-163-1688354-00

PATIENT
  Sex: Female

DRUGS (1)
  1. DEPAKOTE [Suspect]
     Active Substance: DIVALPROEX SODIUM
     Indication: HEADACHE
     Route: 048

REACTIONS (5)
  - Anxiety [Unknown]
  - Headache [Unknown]
  - Feeling abnormal [Unknown]
  - Tension headache [Unknown]
  - Neck pain [Unknown]
